FAERS Safety Report 18569098 (Version 1)
Quarter: 2020Q4

REPORT INFORMATION
  Report Type: Spontaneous
  Country: US (occurrence: US)
  Receive Date: 20201201
  Receipt Date: 20201201
  Transmission Date: 20210114
  Serious: Yes (Life-Threatening, Disabling, Other)
  Sender: FDA-Public Use
  Company Number: None

PATIENT
  Age: 39 Year
  Sex: Female
  Weight: 99 kg

DRUGS (2)
  1. OXYMETAZOLINE HCI 0.05% NASAL SPARAY [Suspect]
     Active Substance: OXYMETAZOLINE HYDROCHLORIDE
     Indication: NASAL CONGESTION
     Route: 055
     Dates: start: 20201201, end: 20201201
  2. LISINOPRIL. [Concomitant]
     Active Substance: LISINOPRIL

REACTIONS (10)
  - Gingival pain [None]
  - Glossodynia [None]
  - Heart rate increased [None]
  - Hypoaesthesia [None]
  - Oropharyngeal pain [None]
  - Panic disorder [None]
  - Pain [None]
  - Nasal discomfort [None]
  - Toothache [None]
  - Hypoaesthesia eye [None]

NARRATIVE: CASE EVENT DATE: 20201201
